FAERS Safety Report 9265126 (Version 1)
Quarter: 2013Q2

REPORT INFORMATION
  Report Type: Spontaneous
  Country: US (occurrence: None)
  Receive Date: 20130430
  Receipt Date: 20130430
  Transmission Date: 20140414
  Serious: Yes (Hospitalization)
  Sender: FDA-Public Use
  Company Number: None

PATIENT
  Age: 59 Year
  Sex: Male
  Weight: 84 kg

DRUGS (1)
  1. ATORVASTATIN [Suspect]
     Indication: HYPERLIPIDAEMIA
     Route: 048
     Dates: start: 20130204, end: 20130428

REACTIONS (13)
  - Oedema [None]
  - Dyspnoea [None]
  - Myalgia [None]
  - Muscular weakness [None]
  - Orthopnoea [None]
  - Snoring [None]
  - Apnoea [None]
  - Weight increased [None]
  - Oedema [None]
  - Fatigue [None]
  - Joint swelling [None]
  - Local swelling [None]
  - Palpitations [None]
